FAERS Safety Report 14592739 (Version 2)
Quarter: 2018Q1

REPORT INFORMATION
  Report Type: Spontaneous
  Country: US (occurrence: US)
  Receive Date: 20180302
  Receipt Date: 20180314
  Transmission Date: 20180509
  Serious: Yes (Other)
  Sender: FDA-Public Use
  Company Number: US-BAUSCH-BL-2018-005573

PATIENT
  Age: 63 Year
  Sex: Female
  Weight: 64.92 kg

DRUGS (8)
  1. EFUDEX [Suspect]
     Active Substance: FLUOROURACIL
     Indication: ACTINIC KERATOSIS
     Dosage: FOR 21 DAYS
     Route: 061
     Dates: start: 2003
  2. EFUDEX [Suspect]
     Active Substance: FLUOROURACIL
     Dosage: FOR 21 DAYS, AS NEEDED, (DIFFERENT BATCH)
     Route: 061
     Dates: start: 201801, end: 20180222
  3. FLUOXETINE [Concomitant]
     Active Substance: FLUOXETINE HYDROCHLORIDE
     Indication: PRODUCT USED FOR UNKNOWN INDICATION
     Route: 048
  4. ZYRTEC [Concomitant]
     Active Substance: CETIRIZINE HYDROCHLORIDE
     Indication: PRODUCT USED FOR UNKNOWN INDICATION
     Dosage: AS NEEDED
     Route: 048
  5. CLONAZEPAM. [Concomitant]
     Active Substance: CLONAZEPAM
     Indication: PRODUCT USED FOR UNKNOWN INDICATION
     Route: 048
  6. EFUDEX [Suspect]
     Active Substance: FLUOROURACIL
     Dosage: FOR 21 DAYS, AS NEEDED, (RESTARTED)
     Route: 061
     Dates: start: 20170205, end: 2017
  7. VITAMIN D [Concomitant]
     Active Substance: CHOLECALCIFEROL
     Indication: PRODUCT USED FOR UNKNOWN INDICATION
     Dosage: 2000 UT
     Route: 048
  8. ZOLPIDEM [Concomitant]
     Active Substance: ZOLPIDEM\ZOLPIDEM TARTRATE
     Indication: PRODUCT USED FOR UNKNOWN INDICATION
     Route: 048

REACTIONS (4)
  - Pigmentation disorder [Recovering/Resolving]
  - Ill-defined disorder [Recovered/Resolved]
  - Arthralgia [Recovered/Resolved]
  - Urticaria [Recovering/Resolving]

NARRATIVE: CASE EVENT DATE: 2017
